FAERS Safety Report 16024573 (Version 2)
Quarter: 2019Q1

REPORT INFORMATION
  Report Type: Spontaneous
  Country: FR (occurrence: FR)
  Receive Date: 20190301
  Receipt Date: 20190306
  Transmission Date: 20190418
  Serious: Yes (Death, Other)
  Sender: FDA-Public Use
  Company Number: FR-PFIZER INC-2019087754

PATIENT

DRUGS (3)
  1. VENLAFAXINE HCL [Suspect]
     Active Substance: VENLAFAXINE HYDROCHLORIDE
     Dosage: UNK
  2. TRAMADOL. [Suspect]
     Active Substance: TRAMADOL
     Dosage: UNK
  3. TIAPRIDE [Suspect]
     Active Substance: TIAPRIDE
     Dosage: UNK

REACTIONS (1)
  - Death [Fatal]
